FAERS Safety Report 10025583 (Version 2)
Quarter: 2014Q1

REPORT INFORMATION
  Report Type: Report from Study
  Country: BR (occurrence: BR)
  Receive Date: 20140320
  Receipt Date: 20140320
  Transmission Date: 20141002
  Serious: Yes (Death, Hospitalization, Other)
  Sender: FDA-Public Use
  Company Number: BR-BAYER-2012-112988

PATIENT
  Age: 62 Year
  Sex: Male
  Weight: 70 kg

DRUGS (6)
  1. NEXAVAR [Suspect]
     Indication: HEPATOCELLULAR CARCINOMA
     Dosage: 200 MG, BID
     Route: 048
     Dates: start: 201209, end: 20121004
  2. NEXAVAR [Suspect]
     Indication: HEPATOCELLULAR CARCINOMA
     Dosage: 400 MG, BID
     Route: 048
     Dates: start: 20121004, end: 201302
  3. NEXAVAR [Suspect]
     Indication: HEPATOCELLULAR CARCINOMA
     Dosage: 2 TABLETS IN THE MORNING AND 2 TABLETS AT NIGHT
     Route: 048
     Dates: start: 2013, end: 201310
  4. OMEPRAZOLE [Concomitant]
     Indication: PAIN PROPHYLAXIS
     Dosage: 2 DF, QD
     Route: 048
     Dates: start: 2006
  5. PROPRANOLOL [Concomitant]
     Indication: ABDOMINAL DISCOMFORT
     Dosage: 2 DF, QD
     Route: 048
     Dates: start: 2006
  6. INSULIN [Concomitant]
     Indication: DIABETES MELLITUS
     Dosage: 18 IU, UNK
     Route: 058
     Dates: start: 2002

REACTIONS (17)
  - Urinary tract infection [Not Recovered/Not Resolved]
  - Ascites [Recovering/Resolving]
  - Diarrhoea [Recovering/Resolving]
  - Dehydration [Not Recovered/Not Resolved]
  - Disorientation [Recovered/Resolved]
  - Decreased appetite [Recovering/Resolving]
  - Weight decreased [Recovering/Resolving]
  - Pyrexia [Not Recovered/Not Resolved]
  - Local swelling [Recovered/Resolved]
  - Ageusia [Not Recovered/Not Resolved]
  - Aphagia [Not Recovered/Not Resolved]
  - Cardiac arrest [Recovered/Resolved]
  - Feeling abnormal [Not Recovered/Not Resolved]
  - Hypotension [Not Recovered/Not Resolved]
  - Renal impairment [Not Recovered/Not Resolved]
  - Hepatocellular carcinoma [Fatal]
  - Abdominal distension [Recovered/Resolved]
